FAERS Safety Report 7708522-2 (Version None)
Quarter: 2011Q3

REPORT INFORMATION
  Report Type: 
  Country: None (occurrence: None)
  Receive Date: 20110824
  Receipt Date: 20110824
  Transmission Date: 20111222
  Serious: Yes (Hospitalization)
  Sender: FDA-Public Use
  Company Number: None

PATIENT
  Age: 22 Year
  Sex: Female
  Weight: 48.8 kg

DRUGS (1)
  1. ALEFACEPT [Suspect]
     Indication: IMMUNOSUPPRESSION
     Dosage: 15 MG MONTHLY SQ
     Route: 058
     Dates: start: 20101201, end: 20110719

REACTIONS (4)
  - NEUTROPENIA [None]
  - HAEMATURIA [None]
  - PYREXIA [None]
  - INCONTINENCE [None]
